FAERS Safety Report 22896510 (Version 2)
Quarter: 2024Q1

REPORT INFORMATION
  Report Type: Report from Study
  Country: US (occurrence: US)
  Receive Date: 20230901
  Receipt Date: 20240224
  Transmission Date: 20240409
  Serious: Yes (Hospitalization, Other)
  Sender: FDA-Public Use
  Company Number: US-TEVA-2023-US-2921584

PATIENT
  Age: 9 Year
  Sex: Male
  Weight: 40.8 kg

DRUGS (5)
  1. METHOTREXATE [Suspect]
     Active Substance: METHOTREXATE
     Indication: Leukaemia
     Dosage: DOSAGE TEXT: LAST DOSE: 28-JUL-2023
     Route: 048
     Dates: start: 20221215, end: 20230803
  2. METHOTREXATE [Suspect]
     Active Substance: METHOTREXATE
     Indication: Leukaemia
     Dosage: DOSAGE TEXT: INTRATHECAL?ONCE?LAST DOSE: 08-JUN-2023
     Route: 042
     Dates: start: 20220714, end: 20230803
  3. VINCRISTINE [Suspect]
     Active Substance: VINCRISTINE
     Indication: Leukaemia
     Dosage: DOSAGE TEXT: ONCE?LAST DOSE: 06-JUL-2023
     Route: 042
     Dates: start: 20220725
  4. PREDNISONE [Suspect]
     Active Substance: PREDNISONE
     Indication: Leukaemia
     Dosage: DOSAGE TEXT: LAST DOSE: 10-JUL-2023
     Route: 048
     Dates: start: 20230511
  5. MERCAPTOPURINE [Suspect]
     Active Substance: MERCAPTOPURINE
     Indication: Leukaemia
     Dosage: DOSAGE TEXT: LAST DOSE: 02-AUG-2023
     Route: 048
     Dates: start: 20220714, end: 20230803

REACTIONS (1)
  - Febrile neutropenia [Recovered/Resolved]

NARRATIVE: CASE EVENT DATE: 20230802
